FAERS Safety Report 16031065 (Version 1)
Quarter: 2019Q1

REPORT INFORMATION
  Report Type: Spontaneous
  Country: CN (occurrence: CN)
  Receive Date: 20190304
  Receipt Date: 20190304
  Transmission Date: 20190418
  Serious: Yes (Hospitalization, Other)
  Sender: FDA-Public Use
  Company Number: CN-PFIZER INC-2019088584

PATIENT
  Age: 72 Year
  Sex: Male

DRUGS (4)
  1. HALOMETASONE [Suspect]
     Active Substance: HALOMETASONE
     Indication: DRUG HYPERSENSITIVITY
     Dosage: UNK
     Route: 061
     Dates: start: 20190109
  2. SOLU-MEDROL [Suspect]
     Active Substance: METHYLPREDNISOLONE SODIUM SUCCINATE
     Indication: DRUG HYPERSENSITIVITY
     Dosage: 40 MG, UNK
     Route: 041
     Dates: start: 20190109
  3. EBASTINE [Suspect]
     Active Substance: EBASTINE
     Indication: DRUG HYPERSENSITIVITY
     Dosage: UNK
     Route: 048
     Dates: start: 20190109
  4. CALCIUM GLUCONATE. [Suspect]
     Active Substance: CALCIUM GLUCONATE
     Indication: DRUG HYPERSENSITIVITY
     Dosage: UNK
     Route: 041
     Dates: start: 20190109

REACTIONS (1)
  - Lung infection [Unknown]

NARRATIVE: CASE EVENT DATE: 20190110
